FAERS Safety Report 6971068-3 (Version None)
Quarter: 2010Q3

REPORT INFORMATION
  Report Type: 
  Country: None (occurrence: None)
  Receive Date: 20100908
  Receipt Date: 20100728
  Transmission Date: 20110219
  Serious: Yes (Hospitalization, Other)
  Sender: FDA-Public Use
  Company Number: US-BAXTER-2008BH002637

PATIENT
  Age: 49 Year
  Sex: Male
  Weight: 103 kg

DRUGS (55)
  1. HEPARIN SODIUM INJECTION [Suspect]
     Indication: PERITONEAL DIALYSIS
     Route: 033
     Dates: start: 20030101, end: 20070101
  2. HEPARIN SODIUM INJECTION [Suspect]
     Indication: ACUTE MYOCARDIAL INFARCTION
     Route: 033
     Dates: start: 20030101, end: 20070101
  3. HEPARIN SODIUM INJECTION [Suspect]
     Indication: CATHETERISATION CARDIAC
     Route: 033
     Dates: start: 20030101, end: 20070101
  4. HEPARIN SODIUM INJECTION [Suspect]
     Indication: THROMBOSIS PROPHYLAXIS
     Route: 033
     Dates: start: 20030101, end: 20070101
  5. HEPARIN SODIUM INJECTION [Suspect]
     Route: 033
     Dates: start: 20070101, end: 20080201
  6. HEPARIN SODIUM INJECTION [Suspect]
     Route: 033
     Dates: start: 20070101, end: 20080201
  7. HEPARIN SODIUM INJECTION [Suspect]
     Route: 033
     Dates: start: 20070101, end: 20080201
  8. HEPARIN SODIUM INJECTION [Suspect]
     Route: 033
     Dates: start: 20070101, end: 20080201
  9. HEPARIN SODIUM INJECTION [Suspect]
     Route: 033
     Dates: start: 20080201, end: 20080201
  10. HEPARIN SODIUM INJECTION [Suspect]
     Route: 033
     Dates: start: 20080201, end: 20080201
  11. HEPARIN SODIUM INJECTION [Suspect]
     Route: 033
     Dates: start: 20080201, end: 20080201
  12. HEPARIN SODIUM INJECTION [Suspect]
     Route: 033
     Dates: start: 20080201, end: 20080201
  13. HEPARIN SODIUM INJECTION [Suspect]
     Route: 040
     Dates: start: 20071118, end: 20071118
  14. HEPARIN SODIUM INJECTION [Suspect]
     Route: 040
     Dates: start: 20071118, end: 20071118
  15. HEPARIN SODIUM INJECTION [Suspect]
     Route: 040
     Dates: start: 20071118, end: 20071118
  16. HEPARIN SODIUM INJECTION [Suspect]
     Route: 040
     Dates: start: 20071118, end: 20071118
  17. HEPARIN SODIUM INJECTION [Suspect]
     Route: 033
     Dates: start: 20080201, end: 20080201
  18. HEPARIN SODIUM INJECTION [Suspect]
     Route: 033
     Dates: start: 20080201, end: 20080201
  19. HEPARIN SODIUM INJECTION [Suspect]
     Route: 033
     Dates: start: 20080201, end: 20080201
  20. HEPARIN SODIUM INJECTION [Suspect]
     Route: 033
     Dates: start: 20080201, end: 20080201
  21. HEPARIN SODIUM INJECTION [Suspect]
     Route: 042
     Dates: start: 20071118, end: 20071101
  22. HEPARIN SODIUM INJECTION [Suspect]
     Route: 042
     Dates: start: 20071118, end: 20071101
  23. HEPARIN SODIUM INJECTION [Suspect]
     Route: 042
     Dates: start: 20071118, end: 20071101
  24. HEPARIN SODIUM INJECTION [Suspect]
     Route: 042
     Dates: start: 20071118, end: 20071101
  25. HEPARIN SODIUM INJECTION [Suspect]
     Route: 042
     Dates: start: 20071118, end: 20071118
  26. HEPARIN SODIUM INJECTION [Suspect]
     Route: 042
     Dates: start: 20071118, end: 20071118
  27. HEPARIN SODIUM INJECTION [Suspect]
     Route: 042
     Dates: start: 20071118, end: 20071118
  28. HEPARIN SODIUM INJECTION [Suspect]
     Route: 042
     Dates: start: 20071118, end: 20071118
  29. HEPARIN SODIUM INJECTION [Suspect]
     Route: 058
     Dates: start: 20080202, end: 20080204
  30. HEPARIN SODIUM INJECTION [Suspect]
     Route: 058
     Dates: start: 20080202, end: 20080204
  31. HEPARIN SODIUM INJECTION [Suspect]
     Route: 058
     Dates: start: 20080202, end: 20080204
  32. HEPARIN SODIUM INJECTION [Suspect]
     Route: 058
     Dates: start: 20080202, end: 20080204
  33. RAMIPRIL [Suspect]
     Indication: BLOOD PRESSURE
     Route: 065
     Dates: start: 20071101, end: 20080201
  34. TOPROL-XL [Suspect]
     Indication: BLOOD PRESSURE MANAGEMENT
     Route: 065
     Dates: start: 20071101, end: 20080201
  35. RENAGEL [Concomitant]
     Indication: PRODUCT USED FOR UNKNOWN INDICATION
     Route: 048
  36. CALCITRIOL [Concomitant]
     Indication: PRODUCT USED FOR UNKNOWN INDICATION
     Route: 048
  37. PHOSLO [Concomitant]
     Indication: PRODUCT USED FOR UNKNOWN INDICATION
     Route: 048
  38. LIPITOR [Concomitant]
     Indication: PRODUCT USED FOR UNKNOWN INDICATION
     Route: 048
  39. PROZAC [Concomitant]
     Indication: PRODUCT USED FOR UNKNOWN INDICATION
     Route: 048
  40. SENSIPAR [Concomitant]
     Indication: PRODUCT USED FOR UNKNOWN INDICATION
     Route: 048
  41. OMEPRAZOLE [Concomitant]
     Indication: PRODUCT USED FOR UNKNOWN INDICATION
     Route: 048
  42. EPOGEN [Concomitant]
     Indication: PRODUCT USED FOR UNKNOWN INDICATION
     Route: 058
  43. MORPHINE [Concomitant]
     Indication: PRODUCT USED FOR UNKNOWN INDICATION
     Route: 048
  44. DELFLEX W/ DEXTROSE 1.5% [Concomitant]
     Indication: PERITONEAL DIALYSIS
     Route: 065
  45. MOBIC [Concomitant]
     Indication: PRODUCT USED FOR UNKNOWN INDICATION
     Route: 048
  46. PLAVIX [Concomitant]
     Indication: PRODUCT USED FOR UNKNOWN INDICATION
     Route: 065
  47. RIFAMPIN [Concomitant]
     Indication: PRODUCT USED FOR UNKNOWN INDICATION
     Route: 065
  48. GABAPENTIN [Concomitant]
     Indication: PRODUCT USED FOR UNKNOWN INDICATION
     Route: 065
  49. ASPIRIN [Concomitant]
     Indication: PRODUCT USED FOR UNKNOWN INDICATION
     Route: 065
  50. LISINOPRIL [Concomitant]
     Indication: PRODUCT USED FOR UNKNOWN INDICATION
     Route: 065
  51. LEXAPRO [Concomitant]
     Indication: PRODUCT USED FOR UNKNOWN INDICATION
     Route: 065
  52. EPOGEN [Concomitant]
     Route: 065
  53. IRON [Concomitant]
     Indication: PRODUCT USED FOR UNKNOWN INDICATION
     Route: 042
  54. CEFTIN [Concomitant]
     Indication: PRODUCT USED FOR UNKNOWN INDICATION
     Route: 065
  55. TRICOR [Concomitant]
     Indication: PRODUCT USED FOR UNKNOWN INDICATION
     Route: 065

REACTIONS (12)
  - ABDOMINAL DISCOMFORT [None]
  - ABDOMINAL PAIN UPPER [None]
  - ABSCESS [None]
  - DIZZINESS [None]
  - ELECTROLYTE IMBALANCE [None]
  - HYPOKALAEMIA [None]
  - HYPOTENSION [None]
  - LOSS OF CONSCIOUSNESS [None]
  - NAUSEA [None]
  - TREMOR [None]
  - UNRESPONSIVE TO STIMULI [None]
  - VOMITING [None]
